FAERS Safety Report 17517537 (Version 1)
Quarter: 2020Q1

REPORT INFORMATION
  Report Type: Spontaneous
  Country: US (occurrence: US)
  Receive Date: 20200309
  Receipt Date: 20200309
  Transmission Date: 20200409
  Serious: Yes (Death, Hospitalization)
  Sender: FDA-Public Use
  Company Number: None

PATIENT
  Age: 56 Year
  Sex: Female
  Weight: 98.7 kg

DRUGS (1)
  1. OZEMPIC [Suspect]
     Active Substance: SEMAGLUTIDE
     Indication: TYPE 2 DIABETES MELLITUS
     Dates: start: 20191218, end: 20191225

REACTIONS (17)
  - Abdominal pain upper [None]
  - Klebsiella test positive [None]
  - Retroperitoneal oedema [None]
  - Disorientation [None]
  - Sepsis [None]
  - Leukocytosis [None]
  - Cyanosis [None]
  - Lethargy [None]
  - Agitation [None]
  - Pancreatic enlargement [None]
  - Intra-abdominal fluid collection [None]
  - Abdominal distension [None]
  - Pancreatitis [None]
  - Lipase increased [None]
  - Communication disorder [None]
  - Metabolic disorder [None]
  - Dehydration [None]

NARRATIVE: CASE EVENT DATE: 20191227
